FAERS Safety Report 16542558 (Version 2)
Quarter: 2019Q3

REPORT INFORMATION
  Report Type: Spontaneous
  Country: US (occurrence: US)
  Receive Date: 20190709
  Receipt Date: 20190905
  Transmission Date: 20191004
  Serious: No
  Sender: FDA-Public Use
  Company Number: US-ASTRAZENECA-2019SE87709

PATIENT
  Age: 68 Year
  Sex: Female
  Weight: 67.6 kg

DRUGS (8)
  1. OXYGEN. [Concomitant]
     Active Substance: OXYGEN
  2. FASENRA [Suspect]
     Active Substance: BENRALIZUMAB
     Indication: EMPHYSEMA
     Dosage: MONTHLY
     Route: 058
  3. FASENRA [Suspect]
     Active Substance: BENRALIZUMAB
     Indication: CHRONIC OBSTRUCTIVE PULMONARY DISEASE
     Dosage: MONTHLY
     Route: 058
     Dates: start: 20190501
  4. FASENRA [Suspect]
     Active Substance: BENRALIZUMAB
     Indication: EOSINOPHIL COUNT
     Dosage: MONTHLY
     Route: 058
  5. FASENRA [Suspect]
     Active Substance: BENRALIZUMAB
     Indication: EMPHYSEMA
     Dosage: MONTHLY
     Route: 058
     Dates: start: 20190501
  6. FASENRA [Suspect]
     Active Substance: BENRALIZUMAB
     Indication: CHRONIC OBSTRUCTIVE PULMONARY DISEASE
     Dosage: MONTHLY
     Route: 058
  7. VITAMIN [Concomitant]
     Active Substance: VITAMINS
  8. FASENRA [Suspect]
     Active Substance: BENRALIZUMAB
     Indication: EOSINOPHIL COUNT
     Dosage: MONTHLY
     Route: 058
     Dates: start: 20190501

REACTIONS (8)
  - Lung infection [Not Recovered/Not Resolved]
  - Somnolence [Recovered/Resolved]
  - Sinusitis [Not Recovered/Not Resolved]
  - Dyspnoea [Not Recovered/Not Resolved]
  - Product dose omission [Not Recovered/Not Resolved]
  - Limb discomfort [Recovered/Resolved]
  - Cough [Not Recovered/Not Resolved]
  - Lung disorder [Not Recovered/Not Resolved]

NARRATIVE: CASE EVENT DATE: 2019
